FAERS Safety Report 15232916 (Version 1)
Quarter: 2018Q3

REPORT INFORMATION
  Report Type: Spontaneous
  Country: CA (occurrence: CA)
  Receive Date: 20180802
  Receipt Date: 20180802
  Transmission Date: 20181010
  Serious: Yes (Life-Threatening)
  Sender: FDA-Public Use
  Company Number: CA-FRESENIUS KABI-FK201808314

PATIENT
  Age: 73 Year
  Sex: Male
  Weight: 107 kg

DRUGS (17)
  1. DIPHENHYDRAMINE HYDROCHLORIDE. [Concomitant]
     Active Substance: DIPHENHYDRAMINE HYDROCHLORIDE
  2. INSULIN ISOPHANE BOVINE [Concomitant]
     Active Substance: INSULIN BEEF
  3. SALBUTAMOL [Concomitant]
     Active Substance: ALBUTEROL
  4. CANAGLIFLOZIN [Concomitant]
     Active Substance: CANAGLIFLOZIN
  5. SODIUM CHLORIDE INJECTION, USP 0.9% [Suspect]
     Active Substance: SODIUM CHLORIDE
     Dosage: 100ML, ONCE
     Route: 042
  6. INSULIN HUMAN INJECTION, ISOPHANE [Concomitant]
     Active Substance: INSULIN HUMAN
  7. PARACETAMOL [Concomitant]
     Active Substance: ACETAMINOPHEN
  8. FLUTICASONE PROPIONATE/SALMETEROL XINAFOATE [Concomitant]
  9. ATORVASTATIN [Concomitant]
     Active Substance: ATORVASTATIN
  10. QUETIAPINE. [Concomitant]
     Active Substance: QUETIAPINE
  11. SODIUM CHLORIDE INJECTION, USP 0.9% [Suspect]
     Active Substance: SODIUM CHLORIDE
     Indication: PRODUCT USED FOR UNKNOWN INDICATION
     Dosage: 10ML ONCE
     Route: 042
  12. ERTAPENEM SODIUM [Suspect]
     Active Substance: ERTAPENEM SODIUM
     Indication: OSTEOMYELITIS
     Route: 042
  13. ACETYLSALICYLIC ACID [Concomitant]
     Active Substance: ASPIRIN
  14. FERROUS SULFATE. [Concomitant]
     Active Substance: FERROUS SULFATE
  15. METFORMIN [Concomitant]
     Active Substance: METFORMIN HYDROCHLORIDE
  16. TIOTROPIUM BROMIDE [Concomitant]
     Active Substance: TIOTROPIUM BROMIDE
  17. LIRAGLUTIDE [Concomitant]
     Active Substance: LIRAGLUTIDE

REACTIONS (9)
  - Hypertension [Unknown]
  - Unresponsive to stimuli [Recovering/Resolving]
  - Oxygen saturation decreased [Unknown]
  - Hypersensitivity [Unknown]
  - Respiratory failure [Unknown]
  - Heart rate increased [Unknown]
  - Endotracheal intubation [Unknown]
  - Speech disorder [Unknown]
  - Acute myocardial infarction [Unknown]
